FAERS Safety Report 5971388-5 (Version None)
Quarter: 2008Q4

REPORT INFORMATION
  Report Type: 
  Country: None (occurrence: None)
  Receive Date: 20081130
  Receipt Date: 20081124
  Transmission Date: 20090506
  Serious: Yes (Other)
  Sender: FDA-Public Use
  Company Number: US-PFIZER INC-2008099462

PATIENT
  Sex: Male

DRUGS (2)
  1. GEODON [Suspect]
     Indication: ASPERGER'S DISORDER
  2. RISPERDAL [Suspect]
     Indication: ASPERGER'S DISORDER

REACTIONS (8)
  - ASPERGER'S DISORDER [None]
  - DERMATITIS ATOPIC [None]
  - DRUG INEFFECTIVE [None]
  - FATIGUE [None]
  - MALAISE [None]
  - SEDATION [None]
  - VISION BLURRED [None]
  - WEIGHT DECREASED [None]
